FAERS Safety Report 5501556-8 (Version None)
Quarter: 2007Q4

REPORT INFORMATION
  Report Type: 
  Country: None (occurrence: None)
  Receive Date: 20071030
  Receipt Date: 20071025
  Transmission Date: 20080405
  Serious: Yes (Death, Other)
  Sender: FDA-Public Use
  Company Number: GB-WYE-G00519207

PATIENT
  Sex: Male

DRUGS (3)
  1. GEMTUZUMAB OZOGAMICIN [Suspect]
     Dosage: UNKNOWN
     Dates: start: 20070604
  2. CYTARABINE [Suspect]
     Dosage: UNKNOWN
     Dates: start: 20070604
  3. DAUNORUBICIN HCL [Suspect]
     Dosage: UNKNOWN
     Dates: start: 20070604

REACTIONS (3)
  - ACUTE MYELOID LEUKAEMIA [None]
  - DISEASE PROGRESSION [None]
  - SKIN HYPERPIGMENTATION [None]
